FAERS Safety Report 17749657 (Version 2)
Quarter: 2020Q2

REPORT INFORMATION
  Report Type: Report from Study
  Country: None (occurrence: US)
  Receive Date: 20200506
  Receipt Date: 20200605
  Transmission Date: 20200714
  Serious: No
  Sender: FDA-Public Use
  Company Number: US-BIOVITRUM-2020US0578

PATIENT
  Age: 21 Year
  Sex: Female

DRUGS (5)
  1. KINERET [Suspect]
     Active Substance: ANAKINRA
     Indication: STILL^S DISEASE
     Route: 058
     Dates: start: 20191017
  2. KINERET [Suspect]
     Active Substance: ANAKINRA
     Route: 058
     Dates: start: 20191016
  3. IRON SUPPLEMENT [Concomitant]
     Active Substance: IRON
     Indication: PRODUCT USED FOR UNKNOWN INDICATION
  4. VITAMIN D [Concomitant]
     Active Substance: VITAMIN D NOS
     Indication: PRODUCT USED FOR UNKNOWN INDICATION
  5. KINERET [Suspect]
     Active Substance: ANAKINRA
     Route: 058
     Dates: start: 20191020

REACTIONS (9)
  - Injection site pruritus [Recovered/Resolved]
  - Root canal infection [Unknown]
  - Injection site scar [Unknown]
  - Injection site urticaria [Recovered/Resolved]
  - Injection site erythema [Unknown]
  - Injection site discolouration [Unknown]
  - Injection site pain [Unknown]
  - Product dose omission [Unknown]
  - Off label use [Unknown]

NARRATIVE: CASE EVENT DATE: 20191016
